FAERS Safety Report 10031478 (Version 3)
Quarter: 2015Q3

REPORT INFORMATION
  Report Type: Spontaneous
  Country: US (occurrence: US)
  Receive Date: 20140324
  Receipt Date: 20150904
  Transmission Date: 20151125
  Serious: Yes (Other)
  Sender: FDA-Public Use
  Company Number: US-ASTELLAS-2014US002768

PATIENT
  Age: 71 Year
  Sex: Female

DRUGS (3)
  1. MYRBETRIQ [Suspect]
     Active Substance: MIRABEGRON
     Indication: HYPERTONIC BLADDER
     Route: 048
     Dates: start: 20140131
  2. CLINDAMYCIN [Interacting]
     Active Substance: CLINDAMYCIN\CLINDAMYCIN PHOSPHATE
     Indication: POST PROCEDURAL INFECTION
     Route: 048
     Dates: start: 20140310, end: 20140323
  3. MECLIZINE [Interacting]
     Active Substance: MECLIZINE\MECLIZINE HYDROCHLORIDE
     Indication: VERTIGO
     Dosage: UNK, UNKNOWN FREQ.
     Route: 065

REACTIONS (5)
  - Nail infection [Unknown]
  - Inhibitory drug interaction [Unknown]
  - Drug ineffective [Recovered/Resolved]
  - Intentional product use issue [Unknown]
  - Staphylococcal infection [Recovered/Resolved]

NARRATIVE: CASE EVENT DATE: 2014
